FAERS Safety Report 9525209 (Version 1)
Quarter: 2013Q1

REPORT INFORMATION
  Report Type: Spontaneous
  Country: US (occurrence: None)
  Receive Date: 20130314
  Receipt Date: 20130314
  Transmission Date: 20140127
  Serious: No
  Sender: FDA-Public Use
  Company Number: 1301USA012902

PATIENT
  Age: 51 Year
  Sex: Male

DRUGS (9)
  1. VICTRELIS (BOCEPREVIR) CAPSULE, 200MG [Suspect]
     Indication: HEPATITIS C
     Route: 048
  2. PEGASYS (PEGINTERFERON ALFA-2A) [Suspect]
     Indication: HEPATITIS C
  3. AMLODIPINE (AMLODIPINE) [Concomitant]
  4. METOPROLOL (METOPROLOL) [Concomitant]
  5. RIBASPHERE (RIBAVIRIN [Suspect]
  6. DIAZEPAM (DIAZEPAM) [Concomitant]
  7. TEMAZEPAM (TEMAZEPAM) [Concomitant]
  8. HYDROCHLOROTHIAZIDE (+) TRIAMTEREN (HYDROCHLOROTHIAZIDE, TRIAMTERENE) [Concomitant]
  9. ACETAMINOPHEN (+) HYDROCODONE BITARTRATE (ACETAMINOPHEN, HYDROCODONE BITARTRATE) [Concomitant]

REACTIONS (2)
  - Blood count abnormal [None]
  - Neuropathy peripheral [None]
